FAERS Safety Report 8173926 (Version 3)
Quarter: 2013Q3

REPORT INFORMATION
  Report Type: Spontaneous
  Country: AR (occurrence: AR)
  Receive Date: 20111010
  Receipt Date: 20130913
  Transmission Date: 20140515
  Serious: Yes (Hospitalization, Other)
  Sender: FDA-Public Use
  Company Number: AR-AMGEN-ARGSP2011051404

PATIENT
  Age: 74 Year
  Sex: Female
  Weight: 68 kg

DRUGS (3)
  1. ENBREL [Suspect]
     Indication: RHEUMATOID ARTHRITIS
     Dosage: 50 MG, WEEKLY
     Route: 058
     Dates: start: 20081226
  2. MIOPROPAN [Concomitant]
     Dosage: UNK
  3. T4 [Concomitant]
     Dosage: UNK

REACTIONS (7)
  - Intestinal haemorrhage [Recovered/Resolved]
  - Diverticulitis [Recovered/Resolved]
  - Procedural haemorrhage [Unknown]
  - Pain [Unknown]
  - Abdominal discomfort [Not Recovered/Not Resolved]
  - Pyrexia [Recovered/Resolved]
  - Injection site rash [Recovered/Resolved]
